FAERS Safety Report 9417598 (Version 1)
Quarter: 2013Q3

REPORT INFORMATION
  Report Type: Spontaneous
  Country: US (occurrence: US)
  Receive Date: 20130724
  Receipt Date: 20130724
  Transmission Date: 20140515
  Serious: No
  Sender: FDA-Public Use
  Company Number: US-BRISTOL-MYERS SQUIBB COMPANY-18995761

PATIENT
  Age: 44 Year
  Sex: Female

DRUGS (3)
  1. ELIQUIS [Suspect]
  2. METHIMAZOLE [Concomitant]
  3. LOPRESSOR [Concomitant]

REACTIONS (1)
  - Tenderness [Unknown]
